FAERS Safety Report 7225035-5 (Version None)
Quarter: 2011Q1

REPORT INFORMATION
  Report Type: 
  Country: None (occurrence: None)
  Receive Date: 20110113
  Receipt Date: 20110110
  Transmission Date: 20110831
  Serious: Yes (Hospitalization, Other)
  Sender: FDA-Public Use
  Company Number: US-AMGEN-KDL440222

PATIENT

DRUGS (6)
  1. IMITREX [Concomitant]
     Dosage: UNK UNK, QD
     Route: 048
     Dates: start: 20070101
  2. SYNTHROID [Concomitant]
     Dosage: UNK UNK, QD
     Route: 048
     Dates: start: 20070101
  3. ENBREL [Suspect]
     Indication: RHEUMATOID ARTHRITIS
     Dosage: 25 MG, 2 TIMES/WK
     Route: 058
     Dates: start: 19990101, end: 20090606
  4. CELEXA [Concomitant]
     Dosage: UNK UNK, QD
     Route: 048
     Dates: start: 20070101
  5. METHYLPREDNISOLONE SODIUM SUCCINATE [Concomitant]
  6. KLONOPIN [Concomitant]
     Dosage: UNK UNK, QD
     Route: 048
     Dates: start: 20070101

REACTIONS (7)
  - DEPRESSION [None]
  - POSTOPERATIVE WOUND INFECTION [None]
  - PAIN [None]
  - JOINT SURGERY [None]
  - FATIGUE [None]
  - PAIN IN EXTREMITY [None]
  - HEADACHE [None]
